FAERS Safety Report 23067731 (Version 1)
Quarter: 2023Q4

REPORT INFORMATION
  Report Type: Spontaneous
  Country: US (occurrence: None)
  Receive Date: 20231016
  Receipt Date: 20231016
  Transmission Date: 20240110
  Serious: Yes (Other)
  Sender: FDA-Public Use
  Company Number: US-MICRO LABS LIMITED-ML2023-05817

PATIENT
  Age: 28 Year
  Sex: Male

DRUGS (2)
  1. BUPROPION [Suspect]
     Active Substance: BUPROPION
     Indication: Product used for unknown indication
  2. OLANZAPINE [Suspect]
     Active Substance: OLANZAPINE
     Indication: Product used for unknown indication

REACTIONS (5)
  - Cardiogenic shock [Unknown]
  - Cardiac arrest [Unknown]
  - Loss of consciousness [Unknown]
  - Myoclonus [Unknown]
  - Intentional overdose [Unknown]
